FAERS Safety Report 9519062 (Version 1)
Quarter: 2013Q3

REPORT INFORMATION
  Report Type: Spontaneous
  Country: NL (occurrence: None)
  Receive Date: 20130910
  Receipt Date: 20130910
  Transmission Date: 20140515
  Serious: Yes (Hospitalization)
  Sender: FDA-Public Use
  Company Number: VAL_02714_2013

PATIENT
  Age: 80 Year
  Sex: Female
  Weight: 71 kg

DRUGS (6)
  1. METOPROLOL (METOPROLOL-METOPROLOL TARTRATE) [Suspect]
     Indication: PRODUCT USED FOR UNKNOWN INDICATION
     Dosage: DF
  2. ALISKIREN [Suspect]
     Indication: CARDIOVASCULAR DISORDER
     Dosage: (DF)
     Route: 048
     Dates: start: 20080519, end: 20110809
  3. AMLODIPINE (AMLODIPINE) [Suspect]
     Indication: PRODUCT USED FOR UNKNOWN INDICATION
     Dosage: (DF [REGIMEN #1])
  4. FUROSEMIDE (FUROSEMIDE) [Suspect]
     Indication: PRODUCT USED FOR UNKNOWN INDICATION
     Dosage: (DF [REGIMEN #1])
  5. PERINDOPRIL (PERINDOPRIL) [Suspect]
     Indication: PRODUCT USED FOR UNKNOWN INDICATION
     Dosage: (DF [REGIMEN #1])
  6. ATORVASTATIN [Concomitant]

REACTIONS (3)
  - Peripheral vascular disorder [None]
  - Condition aggravated [None]
  - Intermittent claudication [None]
